FAERS Safety Report 10224098 (Version 1)
Quarter: 2014Q2

REPORT INFORMATION
  Report Type: Spontaneous
  Country: US (occurrence: US)
  Receive Date: 20140609
  Receipt Date: 20140609
  Transmission Date: 20141212
  Serious: No
  Sender: FDA-Public Use
  Company Number: US-009507513-1406USA002851

PATIENT
  Age: 21 Year
  Sex: Female
  Weight: 141.95 kg

DRUGS (3)
  1. IMPLANON [Suspect]
     Dosage: 1 ROD FOR 3 YEARS
     Route: 059
     Dates: start: 20120501
  2. CONCERTA [Concomitant]
  3. ABILIFY [Concomitant]

REACTIONS (2)
  - Contusion [Not Recovered/Not Resolved]
  - Implant site pain [Not Recovered/Not Resolved]
